FAERS Safety Report 9703218 (Version 3)
Quarter: 2013Q4

REPORT INFORMATION
  Report Type: Spontaneous
  Country: US (occurrence: US)
  Receive Date: 20131122
  Receipt Date: 20131127
  Transmission Date: 20140711
  Serious: No
  Sender: FDA-Public Use
  Company Number: US-DRREDDYS-USA/USA/13/0035651

PATIENT
  Age: 46 Year
  Sex: Male

DRUGS (3)
  1. ZENATANE [Suspect]
     Indication: ACNE
     Route: 065
     Dates: start: 20130826, end: 201309
  2. ZENATANE [Suspect]
     Route: 065
     Dates: start: 20130923, end: 20130923
  3. ZENATANE [Suspect]
     Route: 065
     Dates: start: 20130923

REACTIONS (1)
  - Fatigue [Recovered/Resolved]
